FAERS Safety Report 7001677-7 (Version None)
Quarter: 2010Q3

REPORT INFORMATION
  Report Type: 
  Country: None (occurrence: None)
  Receive Date: 20100920
  Receipt Date: 20100908
  Transmission Date: 20110219
  Serious: Yes (Death, Life-Threatening, Hospitalization)
  Sender: FDA-Public Use
  Company Number: US-PFIZER INC-2010082310

PATIENT
  Age: 8 Year
  Sex: Male
  Weight: 23.8 kg

DRUGS (2)
  1. SUNITINIB MALATE [Suspect]
     Indication: GLIOBLASTOMA MULTIFORME
     Dosage: 15 MG/M2,  DAILY FOR 28 DAYS
     Route: 048
     Dates: start: 20100608, end: 20100623
  2. DECADRON [Suspect]

REACTIONS (17)
  - APNOEA [None]
  - AREFLEXIA [None]
  - CEREBRAL HAEMORRHAGE [None]
  - CRANIAL NERVE DISORDER [None]
  - DISEASE PROGRESSION [None]
  - DYSPHAGIA [None]
  - DYSPNOEA [None]
  - GLIOBLASTOMA MULTIFORME [None]
  - HYPERGLYCAEMIA [None]
  - HYPOPNOEA [None]
  - HYPOTENSION [None]
  - HYPOXIA [None]
  - IDIOSYNCRATIC DRUG REACTION [None]
  - SOMNOLENCE [None]
  - SPINAL CORD HAEMORRHAGE [None]
  - TUMOUR COMPRESSION [None]
  - URINARY RETENTION [None]
